FAERS Safety Report 16623353 (Version 2)
Quarter: 2024Q4

REPORT INFORMATION
  Report Type: Report from Study
  Country: US (occurrence: US)
  Receive Date: 20190724
  Receipt Date: 20241011
  Transmission Date: 20250115
  Serious: Yes (Hospitalization, Other)
  Sender: TAKEDA
  Company Number: US-KAMADA LIMITED-2018US012078

PATIENT
  Sex: Female

DRUGS (4)
  1. GLASSIA [Suspect]
     Active Substance: .ALPHA.1-PROTEINASE INHIBITOR HUMAN
     Indication: Alpha-1 antitrypsin deficiency
     Dosage: UNK, 1/WEEK
     Route: 042
  2. GLASSIA [Suspect]
     Active Substance: .ALPHA.1-PROTEINASE INHIBITOR HUMAN
     Indication: Alpha-1 antitrypsin deficiency
     Dosage: UNK, 1/WEEK
     Route: 042
  3. GLASSIA [Suspect]
     Active Substance: .ALPHA.1-PROTEINASE INHIBITOR HUMAN
     Dosage: 5443 MILLIGRAM, 1/WEEK
     Route: 042
     Dates: start: 202008
  4. GLASSIA [Suspect]
     Active Substance: .ALPHA.1-PROTEINASE INHIBITOR HUMAN
     Dosage: 5443 MILLIGRAM, 1/WEEK
     Route: 042
     Dates: start: 202008

REACTIONS (5)
  - Throat tightness [Unknown]
  - Pharyngeal swelling [Unknown]
  - Atypical pneumonia [Recovering/Resolving]
  - Cough [Unknown]
  - Dyspnoea [Unknown]
